FAERS Safety Report 6311995-3 (Version None)
Quarter: 2009Q3

REPORT INFORMATION
  Report Type: 
  Country: None (occurrence: None)
  Receive Date: 20090817
  Receipt Date: 20081222
  Transmission Date: 20100115
  Serious: Yes (Other)
  Sender: FDA-Public Use
  Company Number: US-BRISTOL-MYERS SQUIBB COMPANY-14453146

PATIENT
  Sex: Male

DRUGS (23)
  1. ESTRACE [Suspect]
     Indication: HORMONE THERAPY
  2. ESTROGEN [Suspect]
  3. MEDROXYPROGESTERONE ACETATE [Suspect]
  4. PREMARIN [Suspect]
  5. CYCRIN [Suspect]
  6. AYGESTIN [Suspect]
  7. PREMPRO [Suspect]
  8. PREMPHASE 14/14 [Suspect]
  9. PROVERA [Suspect]
  10. ACTIVELLA [Suspect]
  11. NORETHINDRONE ACETATE [Suspect]
  12. FEMHRT [Suspect]
  13. CENESTIN [Suspect]
  14. VIVELLE [Suspect]
  15. COMBIPATCH [Suspect]
  16. ESTRATEST [Suspect]
  17. ESTRATAB [Suspect]
  18. CLIMARA [Suspect]
  19. ORTHO TRI-CYCLEN [Suspect]
  20. PREFEST [Suspect]
  21. OGEN [Suspect]
  22. ESTROPIPATE [Suspect]
  23. ESTRADERM [Suspect]

REACTIONS (1)
  - BREAST CANCER [None]
